FAERS Safety Report 10182967 (Version 1)
Quarter: 2014Q2

REPORT INFORMATION
  Report Type: Spontaneous
  Country: US (occurrence: US)
  Receive Date: 20140520
  Receipt Date: 20140520
  Transmission Date: 20141212
  Serious: Yes (Other)
  Sender: FDA-Public Use
  Company Number: US-SA-2014SA062005

PATIENT
  Age: 78 Year
  Sex: Male

DRUGS (4)
  1. AVAPRO [Suspect]
     Indication: BLOOD PRESSURE
     Route: 065
     Dates: start: 2004
  2. AVAPRO [Suspect]
     Indication: BLOOD PRESSURE
     Route: 065
  3. AMLODIPINE [Suspect]
     Indication: PRODUCT USED FOR UNKNOWN INDICATION
     Dosage: DOSE : SPLIT IN HALF
     Route: 065
  4. DILTIAZEM [Suspect]
     Indication: PRODUCT USED FOR UNKNOWN INDICATION
     Route: 065

REACTIONS (6)
  - Cerebrovascular accident [Not Recovered/Not Resolved]
  - Thrombosis [Not Recovered/Not Resolved]
  - Atrial fibrillation [Not Recovered/Not Resolved]
  - Chest discomfort [Not Recovered/Not Resolved]
  - Peripheral swelling [Not Recovered/Not Resolved]
  - Rhinorrhoea [Not Recovered/Not Resolved]
